FAERS Safety Report 18661609 (Version 1)
Quarter: 2020Q4

REPORT INFORMATION
  Report Type: Report from Study
  Country: NL (occurrence: NL)
  Receive Date: 20201224
  Receipt Date: 20201224
  Transmission Date: 20210114
  Serious: Yes (Hospitalization)
  Sender: FDA-Public Use
  Company Number: NL-ROCHE-2734304

PATIENT
  Age: 70 Year
  Sex: Female
  Weight: 65.2 kg

DRUGS (5)
  1. COLECALCIFEROL [Concomitant]
     Active Substance: CHOLECALCIFEROL
     Indication: VITAMIN D DECREASED
     Route: 048
     Dates: start: 20181005
  2. ATEZOLIZUMAB. [Suspect]
     Active Substance: ATEZOLIZUMAB
     Indication: NON-SMALL CELL LUNG CANCER
     Dosage: ON 30/NOV/2020, THE PATIENT RECEIVED MOST RECENT DOSE 1200 MG PRIOR TO SAE.
     Route: 042
     Dates: start: 20201130
  3. MTIG 7192A [Suspect]
     Active Substance: TIRAGOLUMAB
     Indication: NON-SMALL CELL LUNG CANCER
     Dosage: ON 30/NOV/2020, PATIENT RECEIVED MOST RECENT DOSE PRIOR TO SAE.
     Route: 042
     Dates: start: 20201130
  4. APIXABAN [Concomitant]
     Active Substance: APIXABAN
     Indication: VENTRICULAR EXTRASYSTOLES
     Route: 048
     Dates: start: 20150122
  5. SOTALOL. [Concomitant]
     Active Substance: SOTALOL
     Indication: VENTRICULAR EXTRASYSTOLES
     Route: 048
     Dates: start: 20150122

REACTIONS (1)
  - Diplopia [Recovered/Resolved]

NARRATIVE: CASE EVENT DATE: 20201214
